FAERS Safety Report 10019244 (Version 1)
Quarter: 2014Q1

REPORT INFORMATION
  Report Type: Spontaneous
  Country: US (occurrence: US)
  Receive Date: 20140318
  Receipt Date: 20140318
  Transmission Date: 20141002
  Serious: Yes (Death, Hospitalization)
  Sender: FDA-Public Use
  Company Number: US-JNJFOC-20140311143

PATIENT
  Age: 72 Year
  Sex: Male

DRUGS (3)
  1. IMBRUVICA [Suspect]
     Indication: CHRONIC LYMPHOCYTIC LEUKAEMIA
     Route: 048
     Dates: start: 20140124
  2. PROTONIX [Concomitant]
  3. LANTUS [Concomitant]
     Indication: DIABETES MELLITUS

REACTIONS (2)
  - Head injury [Fatal]
  - Fall [Not Recovered/Not Resolved]
